FAERS Safety Report 26199076 (Version 1)
Quarter: 2025Q4

REPORT INFORMATION
  Report Type: Spontaneous
  Country: TR (occurrence: TR)
  Receive Date: 20251225
  Receipt Date: 20251225
  Transmission Date: 20260117
  Serious: Yes (Other)
  Sender: AMGEN
  Company Number: TR-AMGEN-TURSP2025250064

PATIENT
  Age: 72 Year
  Sex: Female

DRUGS (1)
  1. PROLIA [Suspect]
     Active Substance: DENOSUMAB
     Indication: Osteoporosis postmenopausal
     Dosage: UNK, Q6MO (1X1 S SUBCUTANEOUS IN 6 MONTHS)
     Route: 058
     Dates: start: 2025

REACTIONS (3)
  - Femur fracture [Unknown]
  - Ulna fracture [Unknown]
  - Fall [Unknown]
